FAERS Safety Report 8435272-X (Version None)
Quarter: 2012Q2

REPORT INFORMATION
  Report Type: 
  Country: None (occurrence: None)
  Receive Date: 20120614
  Receipt Date: 20120605
  Transmission Date: 20120825
  Serious: Yes (Other)
  Sender: FDA-Public Use
  Company Number: JP-JNJFOC-20120307561

PATIENT
  Sex: Male
  Weight: 78 kg

DRUGS (32)
  1. SILECE [Suspect]
     Indication: FIBROMYALGIA
     Route: 048
  2. DEPAS [Suspect]
     Indication: FIBROMYALGIA
     Route: 048
  3. PAXIL [Suspect]
     Indication: PAIN
     Route: 048
  4. DEPAS [Suspect]
     Indication: SLEEP DISORDER THERAPY
     Route: 048
  5. TETRAMIDE [Suspect]
     Indication: SLEEP DISORDER THERAPY
     Route: 048
     Dates: start: 20110704
  6. OMEPRAZOLE [Concomitant]
     Route: 048
     Dates: start: 20110322, end: 20110816
  7. FENTANYL-100 [Suspect]
     Indication: PAIN
     Route: 062
     Dates: start: 20110614, end: 20110720
  8. SILECE [Suspect]
     Indication: PAIN
     Route: 048
  9. DEPAS [Suspect]
     Indication: DEPRESSION
     Route: 048
  10. TETRAMIDE [Suspect]
     Indication: PAIN
     Route: 048
     Dates: start: 20110704
  11. SILECE [Suspect]
     Indication: SLEEP DISORDER THERAPY
     Route: 048
  12. ANAFRANIL [Suspect]
     Indication: DEPRESSION
     Route: 048
     Dates: start: 20110414, end: 20110714
  13. ANAFRANIL [Suspect]
     Indication: PAIN
     Route: 048
     Dates: start: 20110414, end: 20110714
  14. CODEINE PHOSPHATE [Suspect]
     Route: 048
     Dates: start: 20090928
  15. PAXIL [Suspect]
     Indication: SLEEP DISORDER THERAPY
     Route: 048
  16. SILECE [Suspect]
     Indication: DEPRESSION
     Route: 048
  17. DEPAS [Suspect]
     Indication: PAIN
     Route: 048
  18. CODEINE PHOSPHATE [Suspect]
     Route: 048
     Dates: start: 20110222
  19. PAXIL [Suspect]
     Indication: FIBROMYALGIA
     Route: 048
  20. TETRAMIDE [Suspect]
     Indication: DEPRESSION
     Route: 048
     Dates: start: 20110704
  21. CELEBREX [Concomitant]
     Indication: PAIN
     Route: 048
     Dates: start: 20101028, end: 20110621
  22. MEXITIL [Concomitant]
     Indication: PAIN
     Route: 048
     Dates: end: 20111129
  23. ANAFRANIL [Suspect]
     Indication: FIBROMYALGIA
     Route: 048
     Dates: start: 20110414, end: 20110714
  24. ANAFRANIL [Suspect]
     Indication: SLEEP DISORDER THERAPY
     Route: 048
     Dates: start: 20110414, end: 20110714
  25. TETRAMIDE [Suspect]
     Indication: FIBROMYALGIA
     Route: 048
     Dates: start: 20110704
  26. CODEINE PHOSPHATE [Suspect]
     Route: 048
     Dates: start: 20100820
  27. BISOPROLOL FUMARATE [Concomitant]
     Route: 048
     Dates: start: 20110531, end: 20110830
  28. PAXIL [Suspect]
     Indication: DEPRESSION
     Route: 048
  29. CODEINE PHOSPHATE [Suspect]
     Indication: PAIN
     Route: 048
     Dates: start: 20101005
  30. CODEINE PHOSPHATE [Suspect]
     Route: 048
     Dates: start: 20110419, end: 20110613
  31. CODEINE PHOSPHATE [Suspect]
     Route: 048
     Dates: start: 20091201
  32. PRIMPERAN TAB [Concomitant]
     Route: 048
     Dates: start: 20110517, end: 20110614

REACTIONS (5)
  - ROAD TRAFFIC ACCIDENT [None]
  - ERYTHEMA [None]
  - SOMNOLENCE [None]
  - CONTUSION [None]
  - HAEMORRHAGE SUBCUTANEOUS [None]
